FAERS Safety Report 6490432-2 (Version None)
Quarter: 2009Q4

REPORT INFORMATION
  Report Type: 
  Country: None (occurrence: None)
  Receive Date: 20091208
  Receipt Date: 20091105
  Transmission Date: 20100525
  Serious: Yes (Life-Threatening, Hospitalization)
  Sender: FDA-Public Use
  Company Number: AE-2009-027

PATIENT
  Age: 84 Year
  Sex: Female
  Weight: 71 kg

DRUGS (9)
  1. METOPROLOL TARTRATE [Suspect]
     Indication: HYPERTENSION
     Dosage: 100MG,BID,ORAL
     Route: 048
  2. AMLODIPINE [Suspect]
     Indication: HYPERTENSION
     Dosage: 5MG,BID,ORAL
     Route: 048
  3. LISINOPRIL AND HYDROCHLOROTHIAZIDE [Suspect]
     Indication: HYPERTENSION
     Dosage: 1 AND 1/2 TABLE, QD,ORAL
     Route: 048
     Dates: end: 20080617
  4. MOXONIDINE [Suspect]
     Indication: HYPERTENSION
     Dosage: 0.2MG,BID, ORAL
     Route: 048
  5. NITRO-SPRAY [Suspect]
     Indication: HYPERTENSION
     Dosage: 0.41MG, BUCCAL
     Route: 002
     Dates: end: 20080612
  6. ASPIRIN [Concomitant]
  7. LEVETIRACETAM [Concomitant]
  8. PENTOPRAZOL [Concomitant]
  9. SIMVASTATIN [Concomitant]

REACTIONS (1)
  - SYNCOPE [None]
